FAERS Safety Report 12192405 (Version 2)
Quarter: 2016Q2

REPORT INFORMATION
  Report Type: Report from Study
  Country: NL (occurrence: NL)
  Receive Date: 20160318
  Receipt Date: 20160527
  Transmission Date: 20160815
  Serious: Yes (Life-Threatening, Hospitalization)
  Sender: FDA-Public Use
  Company Number: PHHO2014NL009554

PATIENT
  Age: 42 Year
  Sex: Male
  Weight: 61 kg

DRUGS (4)
  1. LDE 225 [Suspect]
     Active Substance: ERISMODEGIB
     Indication: MEDULLOBLASTOMA
     Dosage: 600 MG, UNK
     Route: 048
     Dates: start: 20140703, end: 20160215
  2. ETOPOSIDE. [Suspect]
     Active Substance: ETOPOSIDE
     Indication: CHEMOTHERAPY
     Route: 065
  3. IFOSFAMIDE. [Suspect]
     Active Substance: IFOSFAMIDE
     Indication: CHEMOTHERAPY
     Route: 065
  4. CISPLATIN. [Suspect]
     Active Substance: CISPLATIN
     Indication: CHEMOTHERAPY
     Route: 065

REACTIONS (5)
  - Nausea [Recovered/Resolved]
  - Hyponatraemia [Recovering/Resolving]
  - Hyponatraemia [Recovered/Resolved]
  - Seizure [Not Recovered/Not Resolved]
  - Vomiting [Recovered/Resolved]

NARRATIVE: CASE EVENT DATE: 20140705
